FAERS Safety Report 8009330-8 (Version None)
Quarter: 2011Q4

REPORT INFORMATION
  Report Type: 
  Country: None (occurrence: None)
  Receive Date: 20111227
  Receipt Date: 20111221
  Transmission Date: 20120403
  Serious: Yes (Hospitalization)
  Sender: FDA-Public Use
  Company Number: DE-SANOFI-AVENTIS-2011SA084013

PATIENT
  Age: 54 Year
  Sex: Male
  Weight: 49 kg

DRUGS (8)
  1. DOCETAXEL [Suspect]
     Indication: HYPOPHARYNGEAL CANCER
     Route: 041
     Dates: start: 20110811, end: 20110811
  2. CETUXIMAB [Suspect]
     Route: 041
     Dates: start: 20111104, end: 20111104
  3. CETUXIMAB [Suspect]
     Indication: HYPOPHARYNGEAL CANCER
     Route: 041
     Dates: start: 20110811, end: 20110811
  4. CISPLATIN [Suspect]
     Indication: HYPOPHARYNGEAL CANCER
     Route: 041
     Dates: start: 20110811, end: 20110811
  5. DOCETAXEL [Suspect]
     Route: 041
     Dates: start: 20110929, end: 20110929
  6. ACETYLSALICYLIC ACID SRT [Concomitant]
     Route: 048
  7. RAMIPRIL [Concomitant]
     Route: 048
     Dates: end: 20111013
  8. CISPLATIN [Suspect]
     Route: 041
     Dates: start: 20110929, end: 20110929

REACTIONS (7)
  - HYPOMAGNESAEMIA [None]
  - HYPOTENSION [None]
  - HYPOCALCAEMIA [None]
  - HYPONATRAEMIA [None]
  - KARNOFSKY SCALE WORSENED [None]
  - HYPOKALAEMIA [None]
  - PRESYNCOPE [None]
